FAERS Safety Report 5019859-2 (Version None)
Quarter: 2006Q2

REPORT INFORMATION
  Report Type: 
  Country: None (occurrence: None)
  Receive Date: 20060607
  Receipt Date: 20060512
  Transmission Date: 20061013
  Serious: Yes (Death)
  Sender: FDA-Public Use
  Company Number: AU-BOEHRINGER INGELHEIM PHARMACEUTICALS, INC.-2006-BP-05363AU

PATIENT
  Age: 78 Year
  Sex: Male

DRUGS (1)
  1. ASASANTIN SR (CAPSULE, LONG ACTING) [Suspect]
     Indication: CEREBROVASCULAR ACCIDENT
     Route: 048

REACTIONS (2)
  - BONE CANCER METASTATIC [None]
  - CEREBROVASCULAR ACCIDENT [None]
